FAERS Safety Report 10078707 (Version 3)
Quarter: 2014Q2

REPORT INFORMATION
  Report Type: Spontaneous
  Country: IL (occurrence: IL)
  Receive Date: 20140415
  Receipt Date: 20140422
  Transmission Date: 20141212
  Serious: Yes (Death, Other)
  Sender: FDA-Public Use
  Company Number: IL-009507513-1310ISR004200

PATIENT
  Age: 66 Year
  Sex: Male
  Weight: 92 kg

DRUGS (3)
  1. VICTRELIS [Suspect]
     Indication: HEPATITIS C
     Dosage: 3/T/D
     Route: 048
     Dates: start: 20130804
  2. PEGASYS [Suspect]
     Dosage: UNK
  3. COPEGUS [Suspect]
     Dosage: UNK
     Route: 048

REACTIONS (11)
  - Pulmonary oedema [Fatal]
  - Haemoglobin decreased [Not Recovered/Not Resolved]
  - Feeling cold [Recovering/Resolving]
  - Feeling cold [Not Recovered/Not Resolved]
  - Pyrexia [Recovered/Resolved]
  - Pyrexia [Not Recovered/Not Resolved]
  - Fatigue [Unknown]
  - Chills [Recovering/Resolving]
  - Poor quality sleep [Unknown]
  - Intentional product misuse [Unknown]
  - Drug dose omission [Unknown]
